FAERS Safety Report 23699543 (Version 1)
Quarter: 2024Q2

REPORT INFORMATION
  Report Type: Spontaneous
  Country: US (occurrence: US)
  Receive Date: 20240402
  Receipt Date: 20240402
  Transmission Date: 20240716
  Serious: No
  Sender: FDA-Public Use
  Company Number: US-BAUSCHBL-2024BNL003911

PATIENT
  Age: 95 Year
  Sex: Female

DRUGS (1)
  1. ERYTHROMYCIN [Suspect]
     Active Substance: ERYTHROMYCIN
     Indication: Product used for unknown indication
     Route: 065
     Dates: start: 20240323

REACTIONS (3)
  - Erythema of eyelid [Unknown]
  - Swelling of eyelid [Unknown]
  - Eye swelling [Unknown]

NARRATIVE: CASE EVENT DATE: 20240301
